FAERS Safety Report 5357377-2 (Version None)
Quarter: 2007Q2

REPORT INFORMATION
  Report Type: 
  Country: None (occurrence: None)
  Receive Date: 20070614
  Receipt Date: 20070605
  Transmission Date: 20071010
  Serious: Yes (Hospitalization)
  Sender: FDA-Public Use
  Company Number: B0474393A

PATIENT
  Age: 64 Year
  Sex: Female
  Weight: 56 kg

DRUGS (2)
  1. LAPATINIB [Suspect]
     Dosage: 1250MG PER DAY
     Route: 048
     Dates: start: 20070223
  2. CAPECITABINE [Suspect]
     Dosage: 3000MG PER DAY
     Route: 048
     Dates: start: 20070223

REACTIONS (3)
  - OEDEMA [None]
  - PYREXIA [None]
  - VOMITING [None]
